FAERS Safety Report 8209070-6 (Version None)
Quarter: 2012Q1

REPORT INFORMATION
  Report Type: 
  Country: None (occurrence: None)
  Receive Date: 20120314
  Receipt Date: 20120309
  Transmission Date: 20120608
  Serious: Yes (Hospitalization)
  Sender: FDA-Public Use
  Company Number: US-GILEAD-2012-0050686

PATIENT
  Age: 61 Year
  Sex: Female

DRUGS (4)
  1. LETAIRIS [Suspect]
     Indication: PULMONARY HYPERTENSION
     Dosage: 10 MG, UNK
     Route: 048
     Dates: start: 20090801
  2. ADCIRCA [Concomitant]
  3. LETAIRIS [Suspect]
     Indication: HEART DISEASE CONGENITAL
  4. LETAIRIS [Suspect]
     Indication: ATRIAL SEPTAL DEFECT

REACTIONS (3)
  - INFECTION [None]
  - DIARRHOEA [None]
  - PNEUMONIA [None]
